FAERS Safety Report 7472929-1 (Version None)
Quarter: 2011Q2

REPORT INFORMATION
  Report Type: 
  Country: None (occurrence: None)
  Receive Date: 20110503
  Receipt Date: 20110418
  Transmission Date: 20111010
  Serious: Yes (Hospitalization, Other)
  Sender: FDA-Public Use
  Company Number: 031715

PATIENT
  Sex: Male
  Weight: 104.3 kg

DRUGS (8)
  1. NYSTATIN [Concomitant]
  2. PREDNISONE [Concomitant]
  3. ZOFRAN [Concomitant]
  4. CIMZIA [Suspect]
     Indication: CROHN'S DISEASE
     Dosage: (400 MG 1X/4 WEEKS, NR OF DOSES RECEIVED: 4 SUBCUTANEOUS)
     Route: 058
     Dates: start: 20110216
  5. CIPRO [Concomitant]
  6. LORTAB [Concomitant]
  7. FLAGYL [Concomitant]
  8. ZANTAC /00550802/ [Concomitant]

REACTIONS (3)
  - ANAL ABSCESS [None]
  - HAEMOGLOBIN DECREASED [None]
  - HAEMATOCRIT DECREASED [None]
